FAERS Safety Report 19732224 (Version 2)
Quarter: 2021Q3

REPORT INFORMATION
  Report Type: Spontaneous
  Country: IT (occurrence: IT)
  Receive Date: 20210820
  Receipt Date: 20210823
  Transmission Date: 20211014
  Serious: Yes (Other)
  Sender: FDA-Public Use
  Company Number: IT-JAZZ-2021-IT-002877

PATIENT
  Age: 69 Year
  Sex: Female

DRUGS (1)
  1. VYXEOS [Suspect]
     Active Substance: CYTARABINE\DAUNORUBICIN
     Indication: ACUTE MYELOID LEUKAEMIA
     Dosage: UNKNOWN DOSE AND FREQUENCY
     Route: 065
     Dates: start: 201909

REACTIONS (2)
  - Pyrexia [Recovered/Resolved]
  - Myelosuppression [Unknown]
